FAERS Safety Report 8485383 (Version 7)
Quarter: 2013Q3

REPORT INFORMATION
  Report Type: Spontaneous
  Country: US (occurrence: US)
  Receive Date: 20120330
  Receipt Date: 20130809
  Transmission Date: 20140515
  Serious: Yes (Hospitalization, Disabling, Other)
  Sender: FDA-Public Use
  Company Number: US-009507513-1203USA03374

PATIENT
  Sex: Female
  Weight: 73.48 kg

DRUGS (4)
  1. FOSAMAX [Suspect]
     Indication: OSTEOPOROSIS
     Dosage: 10 MG, UNK
     Route: 048
     Dates: start: 19960822, end: 20010126
  2. FOSAMAX [Suspect]
     Indication: OSTEOPOROSIS PROPHYLAXIS
     Dosage: 70 MG, QW
     Route: 048
     Dates: start: 20020321, end: 20080827
  3. CALCIUM (UNSPECIFIED) [Concomitant]
     Indication: OSTEOPOROSIS
     Dosage: 1 G, QD
  4. MK-9278 [Concomitant]
     Indication: OSTEOPOROSIS
     Dosage: UNK UNK, QD

REACTIONS (49)
  - Intramedullary rod insertion [Unknown]
  - Intramedullary rod insertion [Unknown]
  - Procedural haemorrhage [Unknown]
  - Haematocrit decreased [Unknown]
  - Bladder disorder [Unknown]
  - Infectious colitis [Unknown]
  - Chest pain [Unknown]
  - Diverticulitis [Unknown]
  - Uterine prolapse [Unknown]
  - Low turnover osteopathy [Unknown]
  - Asthenia [Unknown]
  - Neck pain [Unknown]
  - Femur fracture [Recovered/Resolved]
  - Femur fracture [Recovered/Resolved]
  - Laceration [Unknown]
  - Periorbital haemorrhage [Unknown]
  - Essential hypertension [Unknown]
  - Hypothyroidism [Unknown]
  - Hyperlipidaemia [Unknown]
  - Depression [Unknown]
  - Anxiety [Not Recovered/Not Resolved]
  - Breast disorder [Unknown]
  - Large intestine polyp [Unknown]
  - Calculus ureteric [Unknown]
  - Fatigue [Unknown]
  - Osteopenia [Unknown]
  - Nocturia [Unknown]
  - Osteoarthritis [Unknown]
  - Chest pain [Unknown]
  - Poor quality sleep [Unknown]
  - Lethargy [Unknown]
  - Apathy [Unknown]
  - Functional gastrointestinal disorder [Unknown]
  - Diverticulum [Unknown]
  - Stress [Unknown]
  - Spinal fracture [Unknown]
  - Road traffic accident [Unknown]
  - Loss of consciousness [Unknown]
  - Contusion [Unknown]
  - Dermatitis contact [Recovered/Resolved]
  - Sciatica [Recovering/Resolving]
  - Parathyroid tumour benign [Unknown]
  - Muscle strain [Unknown]
  - Bursitis [Unknown]
  - Constipation [Unknown]
  - Oedema peripheral [Unknown]
  - Drug ineffective [Unknown]
  - Nausea [Unknown]
  - Musculoskeletal pain [Unknown]
